FAERS Safety Report 22800586 (Version 2)
Quarter: 2023Q4

REPORT INFORMATION
  Report Type: Spontaneous
  Country: US (occurrence: US)
  Receive Date: 20230808
  Receipt Date: 20231012
  Transmission Date: 20240110
  Serious: Yes (Other)
  Sender: FDA-Public Use
  Company Number: US-PFIZER INC-202300269320

PATIENT
  Age: 63 Year
  Sex: Female

DRUGS (3)
  1. XELJANZ XR [Suspect]
     Active Substance: TOFACITINIB CITRATE
     Indication: Psoriatic arthropathy
     Dosage: UNK
  2. AMOXICILLIN [Suspect]
     Active Substance: AMOXICILLIN
     Indication: Prophylaxis
  3. AMOXICILLIN [Suspect]
     Active Substance: AMOXICILLIN
     Indication: Dental care

REACTIONS (7)
  - Atrial fibrillation [Unknown]
  - Knee arthroplasty [Unknown]
  - Noninfective gingivitis [Unknown]
  - Pain [Unknown]
  - Abdominal discomfort [Unknown]
  - Abdominal distension [Unknown]
  - Brain fog [Unknown]

NARRATIVE: CASE EVENT DATE: 20160101
